FAERS Safety Report 5525041-2 (Version None)
Quarter: 2007Q4

REPORT INFORMATION
  Report Type: 
  Country: None (occurrence: None)
  Receive Date: 20071119
  Receipt Date: 20071112
  Transmission Date: 20080405
  Serious: Yes (Hospitalization, Other)
  Sender: FDA-Public Use
  Company Number: 163-21880-07110699

PATIENT
  Age: 53 Year
  Sex: Male
  Weight: 87.0906 kg

DRUGS (4)
  1. REVLIMID [Suspect]
     Indication: MULTIPLE MYELOMA
     Dosage: 10 MG, 1 IN 1 D, ORAL
     Route: 048
     Dates: start: 20070115, end: 20071104
  2. ASPIRIN [Concomitant]
  3. ZOMETA [Concomitant]
  4. DEXAMETHASONE TAB [Concomitant]

REACTIONS (2)
  - BLOOD POTASSIUM DECREASED [None]
  - CARDIAC ARREST [None]
